APPROVED DRUG PRODUCT: AMANTADINE HYDROCHLORIDE
Active Ingredient: AMANTADINE HYDROCHLORIDE
Strength: 50MG/5ML
Dosage Form/Route: SYRUP;ORAL
Application: A074509 | Product #001 | TE Code: AA
Applicant: PHARMACEUTICAL ASSOCIATES INC
Approved: Jul 17, 1995 | RLD: No | RS: Yes | Type: RX